FAERS Safety Report 12109270 (Version 1)
Quarter: 2016Q1

REPORT INFORMATION
  Report Type: Spontaneous
  Country: US (occurrence: None)
  Receive Date: 20160222
  Receipt Date: 20160222
  Transmission Date: 20160526
  Serious: Yes (Hospitalization)
  Sender: FDA-Public Use
  Company Number: None

PATIENT
  Age: 95 Year
  Sex: Male

DRUGS (18)
  1. ASPIRIN. [Concomitant]
     Active Substance: ASPIRIN
  2. ATENOLOL. [Concomitant]
     Active Substance: ATENOLOL
  3. CLONIDINE. [Concomitant]
     Active Substance: CLONIDINE
  4. SENNA [Concomitant]
     Active Substance: SENNA LEAF\SENNOSIDES\SENNOSIDES A AND B
  5. ATORVASTATIN [Concomitant]
     Active Substance: ATORVASTATIN
  6. HYDRALAZINE [Concomitant]
     Active Substance: HYDRALAZINE HYDROCHLORIDE
  7. LISINOPRIL. [Concomitant]
     Active Substance: LISINOPRIL
  8. GLIPIZIDE. [Concomitant]
     Active Substance: GLIPIZIDE
  9. INSULIN LISPRO [Concomitant]
     Active Substance: INSULIN LISPRO
  10. ACETAMINOPHEN-CODEINE [Concomitant]
     Active Substance: ACETAMINOPHEN\CODEINE PHOSPHATE
  11. ISOSORBIDE MONONITRATE. [Concomitant]
     Active Substance: ISOSORBIDE MONONITRATE
  12. MILK OF MAGNESIA [Concomitant]
     Active Substance: MAGNESIUM HYDROXIDE
  13. CIPROFLOXACIN. [Suspect]
     Active Substance: CIPROFLOXACIN
     Indication: ANTIBIOTIC PROPHYLAXIS
     Route: 048
     Dates: end: 20151207
  14. POTASSIUM CHLORIDE. [Concomitant]
     Active Substance: POTASSIUM CHLORIDE
  15. ACETAMINOPHEN. [Concomitant]
     Active Substance: ACETAMINOPHEN
  16. FUROSEMIDE. [Concomitant]
     Active Substance: FUROSEMIDE
  17. DOCUSATE [Concomitant]
     Active Substance: DOCUSATE
  18. DILTIAZEM [Concomitant]
     Active Substance: DILTIAZEM

REACTIONS (4)
  - Documented hypersensitivity to administered product [None]
  - Pain [None]
  - Rash erythematous [None]
  - Blister [None]

NARRATIVE: CASE EVENT DATE: 20151207
